FAERS Safety Report 8818823 (Version 1)
Quarter: 2012Q4

REPORT INFORMATION
  Report Type: 
  Country: US (occurrence: US)
  Receive Date: 20121001
  Receipt Date: 20121001
  Transmission Date: 20130627
  Serious: Yes (Other)
  Sender: FDA-Public Use
  Company Number: PHEH2012US018991

PATIENT
  Sex: Female

DRUGS (1)
  1. GLEEVEC [Suspect]
     Indication: MULTIPLE MYELOMA
     Dosage: 400 mg, daily
     Route: 048
     Dates: start: 20120606

REACTIONS (2)
  - Rib fracture [Unknown]
  - Muscle spasms [Unknown]
